FAERS Safety Report 9395141 (Version 3)
Quarter: 2013Q4

REPORT INFORMATION
  Report Type: Report from Study
  Country: US (occurrence: US)
  Receive Date: 20130711
  Receipt Date: 20131023
  Transmission Date: 20140711
  Serious: Yes (Hospitalization)
  Sender: FDA-Public Use
  Company Number: US-BAYER-2013-084248

PATIENT
  Age: 67 Year
  Sex: Female

DRUGS (2)
  1. STIVARGA [Suspect]
     Indication: COLON CANCER
     Dosage: 160 MG, (40 MG X 4 TABLETS) QD
     Route: 048
     Dates: start: 20130624, end: 20130705
  2. STIVARGA [Suspect]
     Indication: COLON CANCER
     Dosage: 160 MG, (40 MG X 4 TABLETS) QD
     Route: 048
     Dates: start: 20130712

REACTIONS (2)
  - Confusional state [Recovered/Resolved]
  - Urticaria [Recovered/Resolved]
